FAERS Safety Report 8989790 (Version 1)
Quarter: 2012Q4

REPORT INFORMATION
  Report Type: 
  Country: IT (occurrence: IT)
  Receive Date: 20121228
  Receipt Date: 20121228
  Transmission Date: 20130627
  Serious: Yes (Other)
  Sender: FDA-Public Use
  Company Number: IT-PFIZER INC-2012331801

PATIENT
  Age: 84 Year
  Sex: Male

DRUGS (3)
  1. ZOLOFT [Suspect]
     Indication: DEPRESSION
     Dosage: UNK
     Dates: start: 20110301
  2. WARFARIN SODIUM [Suspect]
     Indication: ATRIAL FIBRILLATION
     Dosage: 1 unit dose as needed
     Route: 048
     Dates: start: 20110501, end: 20121217
  3. SEROQUEL [Suspect]
     Indication: DEPRESSION
     Dosage: 1 unit dose daily
     Route: 048
     Dates: start: 20110301

REACTIONS (2)
  - International normalised ratio increased [Unknown]
  - Haematoma [Unknown]
